FAERS Safety Report 12308899 (Version 1)
Quarter: 2016Q2

REPORT INFORMATION
  Report Type: Spontaneous
  Country: None (occurrence: None)
  Receive Date: 20160426
  Receipt Date: 20160426
  Transmission Date: 20160815
  Serious: No
  Sender: FDA-Public Use
  Company Number: None

PATIENT
  Age: 47 Year
  Sex: Female

DRUGS (1)
  1. OXYCODONE, 5 MG [Suspect]
     Active Substance: OXYCODONE
     Indication: PAIN
     Route: 048
     Dates: start: 20141021, end: 20160425

REACTIONS (3)
  - Euphoric mood [None]
  - Abnormal dreams [None]
  - Nausea [None]

NARRATIVE: CASE EVENT DATE: 20160424
